FAERS Safety Report 16775263 (Version 13)
Quarter: 2023Q1

REPORT INFORMATION
  Report Type: Spontaneous
  Country: US (occurrence: US)
  Receive Date: 20190905
  Receipt Date: 20230120
  Transmission Date: 20230417
  Serious: Yes (Disabling)
  Sender: FDA-Public Use
  Company Number: US-AMERICAN REGENT INC-2019001876

PATIENT
  Age: 57 Year
  Sex: Male
  Weight: 112.83 kg

DRUGS (24)
  1. FERRIC CARBOXYMALTOSE [Suspect]
     Active Substance: FERRIC CARBOXYMALTOSE
     Indication: Iron deficiency anaemia
     Dosage: 4 PER YEAR
     Route: 042
     Dates: start: 2014, end: 2014
  2. FERRIC CARBOXYMALTOSE [Suspect]
     Active Substance: FERRIC CARBOXYMALTOSE
     Dosage: 750 MILLIGRAM, SINGLE
     Route: 042
     Dates: start: 20151218, end: 20151218
  3. FERRIC CARBOXYMALTOSE [Suspect]
     Active Substance: FERRIC CARBOXYMALTOSE
     Dosage: 750 MILLIGRAM, IN 250 0.9% SODIUM CHLORIDE, SINGLE
     Route: 042
     Dates: start: 20151228, end: 20151228
  4. FERRIC CARBOXYMALTOSE [Suspect]
     Active Substance: FERRIC CARBOXYMALTOSE
     Dosage: 750 MILLIGRAM, IN 250 0.9% SODIUM CHLORIDE SINGLE
     Route: 042
     Dates: start: 20160404, end: 20160404
  5. FERRIC CARBOXYMALTOSE [Suspect]
     Active Substance: FERRIC CARBOXYMALTOSE
     Dosage: 750 MILLIGRAM, IN 250 0.9% SODIUM CHLORIDE SINGLE
     Route: 042
     Dates: start: 20160412, end: 20160412
  6. FERRIC CARBOXYMALTOSE [Suspect]
     Active Substance: FERRIC CARBOXYMALTOSE
     Dosage: 750 MILLIGRAM, IN 100 0.9% SODIUM CHLORIDE, SINGLE
     Route: 042
     Dates: start: 20160621, end: 20160621
  7. FERRIC CARBOXYMALTOSE [Suspect]
     Active Substance: FERRIC CARBOXYMALTOSE
     Dosage: 750 MILLIGRAM, IN 250 0.9% SODIUM CHLORIDE SINGLE
     Route: 042
     Dates: start: 20160628, end: 20160628
  8. FERRIC CARBOXYMALTOSE [Suspect]
     Active Substance: FERRIC CARBOXYMALTOSE
     Dosage: 750 MILLIGRAM, IN 250 0.9% SODIUM CHLORIDE SINGLE
     Route: 042
     Dates: start: 20161201, end: 20161201
  9. FERRIC CARBOXYMALTOSE [Suspect]
     Active Substance: FERRIC CARBOXYMALTOSE
     Dosage: 750 MILLIGRAM, IN 250 0.9% SODIUM CHLORIDE SINGLE
     Route: 042
     Dates: start: 20161209, end: 20161209
  10. FERRIC CARBOXYMALTOSE [Suspect]
     Active Substance: FERRIC CARBOXYMALTOSE
     Dosage: 750 MILLIGRAM, IN 250 0.9% SODIUM CHLORIDE SINGLE
     Route: 042
     Dates: start: 20170323, end: 20170323
  11. FERRIC CARBOXYMALTOSE [Suspect]
     Active Substance: FERRIC CARBOXYMALTOSE
     Dosage: 750 MILLIGRAM, IN 250 0.9% SODIUM CHLORIDE SINGLE
     Route: 042
     Dates: start: 20170331, end: 20170331
  12. FERRIC CARBOXYMALTOSE [Suspect]
     Active Substance: FERRIC CARBOXYMALTOSE
     Dosage: 750 MILLIGRAM, IN 250 0.9% SODIUM CHLORIDE SINGLE
     Route: 042
     Dates: start: 20171106, end: 20171106
  13. FERRIC CARBOXYMALTOSE [Suspect]
     Active Substance: FERRIC CARBOXYMALTOSE
     Dosage: 750 MILLIGRAM, IN 250 0.9% SODIUM CHLORIDE SINGLE
     Route: 042
     Dates: start: 20171130, end: 20171130
  14. FERRIC CARBOXYMALTOSE [Suspect]
     Active Substance: FERRIC CARBOXYMALTOSE
     Dosage: 750 MILLIGRAM, IN 50 0.9% SODIUM CHLORIDE SINGLE
     Route: 042
     Dates: start: 20180205, end: 20180205
  15. FERRIC CARBOXYMALTOSE [Suspect]
     Active Substance: FERRIC CARBOXYMALTOSE
     Dosage: 750 MILLIGRAM, IN 50 0.9% SODIUM CHLORIDE SINGLE
     Route: 042
     Dates: start: 20180212, end: 20180212
  16. FERRIC CARBOXYMALTOSE [Suspect]
     Active Substance: FERRIC CARBOXYMALTOSE
     Dosage: 750 MILLIGRAM, IN 50 0.9% SODIUM CHLORIDE SINGLE
     Route: 042
     Dates: start: 20180625, end: 20180625
  17. FERRIC CARBOXYMALTOSE [Suspect]
     Active Substance: FERRIC CARBOXYMALTOSE
     Dosage: 750 MILLIGRAM, IN 50 0.9% SODIUM CHLORIDE SINGLE
     Route: 042
     Dates: start: 20180702, end: 20180702
  18. FERRIC CARBOXYMALTOSE [Suspect]
     Active Substance: FERRIC CARBOXYMALTOSE
     Dosage: 750 MILLIGRAM, IN 50 0.9% SODIUM CHLORIDE SINGLE
     Route: 042
     Dates: start: 20180927, end: 20180927
  19. FLOMAX                             /01280302/ [Concomitant]
     Indication: Product used for unknown indication
     Dosage: 0.4 MILLIGRAM, QD
     Route: 048
  20. VITAMIN D                          /00107901/ [Concomitant]
     Indication: Vitamin D deficiency
     Dosage: 50000 INTERNATIONAL UNIT WEEKLY
     Route: 048
     Dates: start: 20180625, end: 2018
  21. IRON [Concomitant]
     Active Substance: IRON
     Indication: Product used for unknown indication
     Dosage: UNK
     Route: 065
     Dates: start: 20180209
  22. PANTOPRAZOLE [Concomitant]
     Active Substance: PANTOPRAZOLE
     Indication: Product used for unknown indication
     Dosage: 40 MILLIGRAM, QD
     Route: 048
     Dates: start: 2017
  23. IRON [Concomitant]
     Active Substance: IRON
     Indication: Product used for unknown indication
     Dosage: 2 CAPSULES ONCE
     Route: 048
  24. CLOBETASOL [Concomitant]
     Active Substance: CLOBETASOL
     Indication: Product used for unknown indication
     Dosage: APPLY TO AFFECTED AREA BID
     Route: 061

REACTIONS (13)
  - Fracture [Not Recovered/Not Resolved]
  - Pain [Not Recovered/Not Resolved]
  - Stress fracture [Recovering/Resolving]
  - Bone deformity [Not Recovered/Not Resolved]
  - Muscle atrophy [Recovered/Resolved]
  - Gait disturbance [Recovered/Resolved]
  - Impaired self-care [Not Recovered/Not Resolved]
  - Hypophosphataemia [Not Recovered/Not Resolved]
  - Osteomalacia [Not Recovered/Not Resolved]
  - Anhedonia [Not Recovered/Not Resolved]
  - Emotional distress [Not Recovered/Not Resolved]
  - Anxiety [Not Recovered/Not Resolved]
  - Product quality issue [Unknown]

NARRATIVE: CASE EVENT DATE: 20181009
